APPROVED DRUG PRODUCT: INDOMETHACIN
Active Ingredient: INDOMETHACIN
Strength: 25MG/5ML
Dosage Form/Route: SUSPENSION;ORAL
Application: A071412 | Product #001
Applicant: HIKMA PHARMACEUTICALS USA INC
Approved: Mar 18, 1987 | RLD: No | RS: No | Type: DISCN